FAERS Safety Report 18935492 (Version 2)
Quarter: 2021Q1

REPORT INFORMATION
  Report Type: Spontaneous
  Country: US (occurrence: US)
  Receive Date: 20210224
  Receipt Date: 20210316
  Transmission Date: 20210420
  Serious: No
  Sender: FDA-Public Use
  Company Number: US-ELI_LILLY_AND_COMPANY-US202102011768

PATIENT
  Sex: Male

DRUGS (1)
  1. ZYPREXA [Suspect]
     Active Substance: OLANZAPINE
     Indication: PRODUCT USED FOR UNKNOWN INDICATION
     Dosage: 2.5 MG, UNKNOWN
     Route: 065
     Dates: end: 2012

REACTIONS (8)
  - Type 2 diabetes mellitus [Recovered/Resolved]
  - Dizziness [Not Recovered/Not Resolved]
  - Delirium [Not Recovered/Not Resolved]
  - Amnesia [Not Recovered/Not Resolved]
  - Peyronie^s disease [Not Recovered/Not Resolved]
  - Confusional state [Unknown]
  - Hypoglycaemia [Unknown]
  - Erectile dysfunction [Unknown]
